FAERS Safety Report 6444146-5 (Version None)
Quarter: 2009Q4

REPORT INFORMATION
  Report Type: 
  Country: None (occurrence: None)
  Receive Date: 20091118
  Receipt Date: 20091109
  Transmission Date: 20100525
  Serious: Yes (Hospitalization)
  Sender: FDA-Public Use
  Company Number: US-JNJFOC-20091102755

PATIENT
  Sex: Female

DRUGS (10)
  1. IBUPROFEN [Suspect]
     Indication: ARTHRITIS
     Route: 048
  2. ASPIRIN [Suspect]
     Indication: ROUTINE HEALTH MAINTENANCE
     Route: 048
  3. FOSAMAX [Suspect]
     Indication: OSTEOPOROSIS
     Route: 048
  4. BLINDED STUDY MEDICATION [Concomitant]
     Route: 050
  5. BLINDED STUDY MEDICATION [Concomitant]
     Route: 050
  6. BLINDED STUDY MEDICATION [Concomitant]
     Route: 050
  7. BLINDED STUDY MEDICATION [Concomitant]
     Indication: DEMENTIA ALZHEIMER'S TYPE
     Route: 050
  8. EXELON [Concomitant]
  9. NAMENDA [Concomitant]
  10. VERAPAMIL [Concomitant]

REACTIONS (1)
  - GASTRIC ULCER [None]
